FAERS Safety Report 7682896-3 (Version None)
Quarter: 2011Q3

REPORT INFORMATION
  Report Type: 
  Country: None (occurrence: None)
  Receive Date: 20110815
  Receipt Date: 20110804
  Transmission Date: 20111222
  Serious: Yes (Death)
  Sender: FDA-Public Use
  Company Number: US-ROCHE-794153

PATIENT
  Sex: Male

DRUGS (6)
  1. MYCOPHENOLATE MOFETIL [Suspect]
     Indication: RENAL TRANSPLANT
     Route: 048
     Dates: start: 20070308
  2. ATENOLOL [Concomitant]
     Indication: RENAL TRANSPLANT
     Route: 065
     Dates: start: 20070524, end: 20110605
  3. CYCLOSPORINE [Suspect]
     Indication: RENAL TRANSPLANT
     Route: 048
     Dates: start: 20080219
  4. AMLODIPINE [Concomitant]
     Route: 065
     Dates: start: 20090310, end: 20110605
  5. ASPIRIN [Concomitant]
     Route: 065
     Dates: start: 20110309, end: 20110605
  6. PREDNISOLONE [Suspect]
     Indication: RENAL TRANSPLANT
     Route: 048
     Dates: start: 20070409

REACTIONS (2)
  - IRIS NEOPLASM [None]
  - CARDIAC ARREST [None]
